FAERS Safety Report 6694135-0 (Version None)
Quarter: 2010Q2

REPORT INFORMATION
  Report Type: 
  Country: None (occurrence: None)
  Receive Date: 20100423
  Receipt Date: 20090506
  Transmission Date: 20101027
  Serious: No
  Sender: FDA-Public Use
  Company Number: A0784190A

PATIENT
  Sex: Male

DRUGS (1)
  1. FLOVENT [Suspect]
     Route: 055

REACTIONS (4)
  - ABNORMAL BEHAVIOUR [None]
  - IRRITABILITY [None]
  - MOOD ALTERED [None]
  - PERSONALITY DISORDER [None]
